FAERS Safety Report 22290678 (Version 1)
Quarter: 2023Q2

REPORT INFORMATION
  Report Type: Spontaneous
  Country: US (occurrence: US)
  Receive Date: 20230505
  Receipt Date: 20230505
  Transmission Date: 20230721
  Serious: Yes (Death, Other)
  Sender: FDA-Public Use
  Company Number: US-PURDUE-USA-2023-0301865

PATIENT

DRUGS (4)
  1. FENOFIBRATE [Suspect]
     Active Substance: FENOFIBRATE
     Indication: Product used for unknown indication
     Dosage: 160 MG DAILY (AT 32W6D)
     Route: 064
  2. URSODIOL [Suspect]
     Active Substance: URSODIOL
     Indication: Product used for unknown indication
     Dosage: 300 MILLIGRAM, TID (AT 19W4D)
     Route: 064
  3. URSODIOL [Suspect]
     Active Substance: URSODIOL
     Dosage: 400 MILLIGRAM, TID (INCREASED)
     Route: 064
  4. URSODIOL [Suspect]
     Active Substance: URSODIOL
     Dosage: 500 MILLIGRAM, TID (INCREASED)
     Route: 064

REACTIONS (2)
  - Foetal death [Fatal]
  - Foetal exposure during pregnancy [Unknown]
